FAERS Safety Report 11741964 (Version 1)
Quarter: 2015Q4

REPORT INFORMATION
  Report Type: Spontaneous
  Country: US (occurrence: US)
  Receive Date: 20151116
  Receipt Date: 20151116
  Transmission Date: 20160304
  Serious: Yes (Other)
  Sender: FDA-Public Use
  Company Number: US-SA-2015SA181631

PATIENT
  Sex: Male

DRUGS (3)
  1. PRALUENT [Suspect]
     Active Substance: ALIROCUMAB
     Indication: BLOOD CHOLESTEROL INCREASED
     Route: 065
  2. ATORVASTATIN [Concomitant]
     Active Substance: ATORVASTATIN
  3. ALIROCUMAB PREFILLED PEN [Concomitant]

REACTIONS (2)
  - Rhabdomyolysis [Unknown]
  - Myalgia [Unknown]
